FAERS Safety Report 6180781-X (Version None)
Quarter: 2009Q2

REPORT INFORMATION
  Report Type: 
  Country: None (occurrence: None)
  Receive Date: 20090429
  Receipt Date: 20080827
  Transmission Date: 20091009
  Serious: Yes (Hospitalization)
  Sender: FDA-Public Use
  Company Number: ZYD-AE-08-118

PATIENT
  Sex: Female

DRUGS (6)
  1. ATENOLOL [Suspect]
     Indication: HYPERTENSION
     Dosage: 1 TABLET - BID - PO
     Route: 048
     Dates: start: 20080613
  2. ATENOLOL [Suspect]
     Indication: HYPERTROPHIC CARDIOMYOPATHY
     Dosage: 1 TABLET - BID - PO
     Route: 048
     Dates: start: 20080613
  3. NORVASC [Concomitant]
  4. ASPIRIN [Concomitant]
  5. MULTI-VITAMIN [Concomitant]
  6. GINGER [Concomitant]

REACTIONS (3)
  - BLOOD PRESSURE DECREASED [None]
  - HEART RATE ABNORMAL [None]
  - HYPOTENSION [None]
